FAERS Safety Report 12824141 (Version 1)
Quarter: 2016Q4

REPORT INFORMATION
  Report Type: Spontaneous
  Country: US (occurrence: US)
  Receive Date: 20161007
  Receipt Date: 20161007
  Transmission Date: 20170207
  Serious: No
  Sender: FDA-Public Use
  Company Number: US-009507513-1610USA002313

PATIENT
  Sex: Female

DRUGS (2)
  1. IMPLANON [Suspect]
     Active Substance: ETONOGESTREL
     Indication: PRODUCT USED FOR UNKNOWN INDICATION
     Dosage: UNK
     Route: 023
  2. IMPLANON [Suspect]
     Active Substance: ETONOGESTREL
     Dosage: UNK
     Route: 023
     Dates: start: 20111220

REACTIONS (5)
  - Acne [Unknown]
  - Skin burning sensation [Unknown]
  - Complication associated with device [Not Recovered/Not Resolved]
  - Migraine [Unknown]
  - Incorrect drug administration duration [Unknown]
